FAERS Safety Report 9378940 (Version 1)
Quarter: 2013Q2

REPORT INFORMATION
  Report Type: Spontaneous
  Country: US (occurrence: None)
  Receive Date: 20130626
  Receipt Date: 20130626
  Transmission Date: 20140414
  Serious: Yes (Other)
  Sender: FDA-Public Use
  Company Number: 001552785A

PATIENT
  Age: 17 Year
  Sex: Female

DRUGS (5)
  1. PROACTIV SOLUTION RENEWING CLEANSER [Suspect]
     Indication: ACNE
     Dosage: USED TWICE DERMAL
     Dates: start: 20130507, end: 20130511
  2. PROACTIV SOLUTION REPAIRING TREATMENT [Suspect]
     Indication: ACNE
     Dosage: USED TWICE DERMAL
     Dates: start: 20130507, end: 20130511
  3. PROACTIV SOLUTION DEEP CLEANSING WASH [Suspect]
     Indication: ACNE
     Dosage: APPLIED TWICE DERMAL
     Dates: start: 20130507, end: 20130511
  4. PROACTIV SOLUTION [Suspect]
     Indication: ACNE
     Dosage: APPLIED TWICE DERMAL
     Dates: start: 20130507, end: 20130511
  5. PROACTIV SOLUTION REFINING MASK [Suspect]
     Indication: ACNE
     Dosage: APPLIED TWICE DERMAL
     Dates: start: 20130507, end: 20130511

REACTIONS (4)
  - Erythema [None]
  - Pruritus [None]
  - Swelling [None]
  - Ocular hyperaemia [None]
